FAERS Safety Report 24420022 (Version 2)
Quarter: 2024Q4

REPORT INFORMATION
  Report Type: Spontaneous
  Country: CN (occurrence: CN)
  Receive Date: 20241010
  Receipt Date: 20241018
  Transmission Date: 20250114
  Serious: No
  Sender: ROCHE
  Company Number: CN-BoehringerIngelheim-2024-BI-013460

PATIENT
  Age: 59 Year
  Sex: Female

DRUGS (1)
  1. ALTEPLASE [Suspect]
     Active Substance: ALTEPLASE
     Indication: Thrombolysis
     Dosage: MOST RECENT DOSE RECEIVED ON 21/FEB/2024.
     Route: 042
     Dates: start: 20240221

REACTIONS (1)
  - Haemoptysis [Recovering/Resolving]

NARRATIVE: CASE EVENT DATE: 20240221
